FAERS Safety Report 5810841-1 (Version None)
Quarter: 2008Q3

REPORT INFORMATION
  Report Type: 
  Country: None (occurrence: None)
  Receive Date: 20080710
  Receipt Date: 20080701
  Transmission Date: 20090109
  Serious: Yes (Other)
  Sender: FDA-Public Use
  Company Number: JPI-P-003184

PATIENT
  Age: 41 Year
  Sex: Male

DRUGS (9)
  1. XYREM [Suspect]
     Indication: CATAPLEXY
     Dosage: 3 GM (1.5 GM, 2 IN 1 D), ORAL; 9 GM (4.5 GM, 2 IN 1 D), ORAL; 9 GM (4.5 GM, 2 IN 1 D), ORAL
     Route: 048
     Dates: start: 20080101
  2. XYREM [Suspect]
     Indication: NARCOLEPSY
     Dosage: 3 GM (1.5 GM, 2 IN 1 D), ORAL; 9 GM (4.5 GM, 2 IN 1 D), ORAL; 9 GM (4.5 GM, 2 IN 1 D), ORAL
     Route: 048
     Dates: start: 20080101
  3. XYREM [Suspect]
     Indication: CATAPLEXY
     Dosage: 3 GM (1.5 GM, 2 IN 1 D), ORAL; 9 GM (4.5 GM, 2 IN 1 D), ORAL; 9 GM (4.5 GM, 2 IN 1 D), ORAL
     Route: 048
     Dates: start: 20080129
  4. XYREM [Suspect]
     Indication: NARCOLEPSY
     Dosage: 3 GM (1.5 GM, 2 IN 1 D), ORAL; 9 GM (4.5 GM, 2 IN 1 D), ORAL; 9 GM (4.5 GM, 2 IN 1 D), ORAL
     Route: 048
     Dates: start: 20080129
  5. MODAFINIL [Concomitant]
  6. LOSARTAN POTASSIUM HYDROCHLOROTHIAZIDE (HYZAAR) [Concomitant]
  7. VERAPAMIL [Concomitant]
  8. ALPRAZOLAM [Concomitant]
  9. INSULIN (INSULIN) [Concomitant]

REACTIONS (15)
  - ANXIETY [None]
  - BLOOD GLUCOSE FLUCTUATION [None]
  - CONCUSSION [None]
  - DEPRESSION [None]
  - FALL [None]
  - HEAD INJURY [None]
  - INJURY [None]
  - JOINT DISLOCATION [None]
  - LIMB INJURY [None]
  - MEMORY IMPAIRMENT [None]
  - MICTURITION URGENCY [None]
  - MIGRAINE [None]
  - NAUSEA [None]
  - OPEN FRACTURE [None]
  - POST CONCUSSION SYNDROME [None]
